FAERS Safety Report 25173923 (Version 4)
Quarter: 2025Q4

REPORT INFORMATION
  Report Type: Spontaneous
  Country: EU (occurrence: EU)
  Receive Date: 20250408
  Receipt Date: 20251031
  Transmission Date: 20260117
  Serious: Yes (Hospitalization, Other)
  Sender: NOVARTIS
  Company Number: EU-002147023-NVSC2025DE055630

PATIENT
  Age: 24 Year
  Sex: Male
  Weight: 71.2 kg

DRUGS (10)
  1. MIDOSTAURIN [Suspect]
     Active Substance: MIDOSTAURIN
     Indication: Acute myeloid leukaemia
     Dosage: 50 MG, QD
     Route: 065
     Dates: start: 20210917, end: 2021
  2. MIDOSTAURIN [Suspect]
     Active Substance: MIDOSTAURIN
     Dosage: 50 MG, BID (ON DAY 8)
     Route: 048
     Dates: start: 20210924, end: 20210929
  3. POSACONAZOLE [Suspect]
     Active Substance: POSACONAZOLE
     Indication: Antifungal prophylaxis
     Dosage: 300 MG, QD (STOP UNKNOWN, PROBABLY AFTER ALLOGENEIC STEM CELL TRANSPLANT)
     Route: 048
     Dates: start: 20210916
  4. POSACONAZOLE [Suspect]
     Active Substance: POSACONAZOLE
     Dosage: UNK
     Route: 065
     Dates: start: 202109, end: 2021
  5. CYTARABINE [Concomitant]
     Active Substance: CYTARABINE
     Indication: Acute myeloid leukaemia
     Dosage: 396 MG, QD (CONTINUOUSLY)
     Route: 042
     Dates: start: 20210917, end: 20210921
  6. CYTARABINE [Concomitant]
     Active Substance: CYTARABINE
     Dosage: UNK (HIGH DOSE FOR 4 CYCLES)
     Route: 065
  7. CYTARABINE [Concomitant]
     Active Substance: CYTARABINE
     Dosage: 200 MG/M2
     Route: 065
     Dates: start: 20210917, end: 2021
  8. DAUNORUBICIN [Concomitant]
     Active Substance: DAUNORUBICIN
     Indication: Acute myeloid leukaemia
     Dosage: 119 MG, QD
     Route: 042
     Dates: start: 20210917, end: 20210919
  9. DAUNORUBICIN [Concomitant]
     Active Substance: DAUNORUBICIN
     Dosage: 60 MG/M2 (ON DAYS 1 TO 3)
     Route: 065
     Dates: start: 20210917, end: 2021
  10. CYTARABINE [Concomitant]
     Active Substance: CYTARABINE
     Indication: Acute myeloid leukaemia
     Dosage: UNK (FOUR CYCLES OF HIGH-DOSE)
     Route: 065

REACTIONS (7)
  - Febrile neutropenia [Recovered/Resolved]
  - Drug ineffective [Unknown]
  - Myopericarditis [Recovered/Resolved]
  - Drug interaction [Unknown]
  - Myopericarditis [Recovered/Resolved]
  - Chest pain [Recovered/Resolved]
  - Myocarditis [Recovered/Resolved]

NARRATIVE: CASE EVENT DATE: 20210101
